FAERS Safety Report 12259527 (Version 1)
Quarter: 2016Q2

REPORT INFORMATION
  Report Type: Spontaneous
  Country: US (occurrence: US)
  Receive Date: 20160412
  Receipt Date: 20160412
  Transmission Date: 20160815
  Serious: No
  Sender: FDA-Public Use
  Company Number: US-SA-2015SA114877

PATIENT
  Age: 90 Year
  Sex: Female

DRUGS (3)
  1. ALLEGRA [Suspect]
     Active Substance: FEXOFENADINE HYDROCHLORIDE
     Dosage: START FROM: FROM THIS PAST WEEK
     Route: 048
  2. LEVOTHYROXINE. [Concomitant]
     Active Substance: LEVOTHYROXINE
     Route: 065
  3. TYLENOL [Concomitant]
     Active Substance: ACETAMINOPHEN
     Route: 065

REACTIONS (7)
  - Insomnia [Unknown]
  - Inappropriate schedule of drug administration [Unknown]
  - Discomfort [Unknown]
  - Pain in extremity [Unknown]
  - Drug dose omission [Unknown]
  - Blood pressure increased [Unknown]
  - Headache [Unknown]
